FAERS Safety Report 21321943 (Version 1)
Quarter: 2022Q3

REPORT INFORMATION
  Report Type: Spontaneous
  Country: FR (occurrence: FR)
  Receive Date: 20220912
  Receipt Date: 20220912
  Transmission Date: 20221026
  Serious: Yes (Other)
  Sender: FDA-Public Use
  Company Number: FR-PBT-005076

PATIENT
  Age: 68 Year
  Sex: Male

DRUGS (3)
  1. TACROLIMUS [Suspect]
     Active Substance: TACROLIMUS
     Indication: Prophylaxis against transplant rejection
     Route: 065
  2. MYCOPHENOLATE MOFETIL [Suspect]
     Active Substance: MYCOPHENOLATE MOFETIL
     Indication: Prophylaxis against transplant rejection
     Route: 065
  3. Pfizer-BioNTech [Concomitant]
     Indication: COVID-19 prophylaxis
     Dosage: 4 DOSES
     Route: 065

REACTIONS (2)
  - Vaccination failure [Unknown]
  - Transplant rejection [Unknown]

NARRATIVE: CASE EVENT DATE: 20120101
